FAERS Safety Report 15050495 (Version 2)
Quarter: 2019Q1

REPORT INFORMATION
  Report Type: Report from Study
  Country: JP (occurrence: JP)
  Receive Date: 20180622
  Receipt Date: 20190328
  Transmission Date: 20190417
  Serious: Yes (Other)
  Sender: FDA-Public Use
  Company Number: JP-CELLTRION INC.-2018JP020690

PATIENT

DRUGS (20)
  1. INFLIXIMAB BS FOR I.V. INFUSION100 MG [NK] [Suspect]
     Active Substance: INFLIXIMAB
     Indication: RHEUMATOID ARTHRITIS
     Dosage: 400 MG/BODY/DAY
     Route: 042
     Dates: start: 20171120, end: 20171120
  2. INFLIXIMAB BS FOR I.V. INFUSION100 MG [NK] [Suspect]
     Active Substance: INFLIXIMAB
     Dosage: 400 MG/BODY/DAY
     Route: 042
     Dates: start: 20180312, end: 20180312
  3. INFLIXIMAB BS FOR I.V. INFUSION100 MG [NK] [Suspect]
     Active Substance: INFLIXIMAB
     Dosage: 400 MG/BODY/DAY
     Route: 042
     Dates: start: 20180116, end: 20180116
  4. INFLIXIMAB BS FOR I.V. INFUSION100 MG [NK] [Suspect]
     Active Substance: INFLIXIMAB
     Dosage: 400 MG/BODY/DAY
     Route: 042
     Dates: start: 20190108, end: 20190108
  5. FOLIAMIN [Concomitant]
     Active Substance: FOLIC ACID
     Indication: PROPHYLAXIS
     Dosage: 10 MG, DAILY (SINCE MORE THAN 3 MONTHS BEFORE THE INITIATION OF INFLIXIMAB BS)
  6. MUCOSTA [Concomitant]
     Active Substance: REBAMIPIDE
     Indication: GASTRITIS PROPHYLAXIS
     Dosage: 200 MG/DAY (SINCE MORE THAN 3 MONTHS BEFORE THE INITIATION OF INFLIXIMAB BS)
  7. FOSAMAC [Concomitant]
     Active Substance: ALENDRONATE SODIUM
     Indication: OSTEOPOROSIS
     Dosage: 35 MG/DAY (SINCE MORE THAN 3 MONTHS BEFORE THE INITIATION OF INFLIXIMAB BS)
  8. PREDNISOLONE. [Concomitant]
     Active Substance: PREDNISOLONE
     Indication: RHEUMATOID ARTHRITIS
     Dosage: 1 MG/DAY
     Dates: start: 20161017, end: 20180717
  9. INFLIXIMAB BS FOR I.V. INFUSION100 MG [NK] [Suspect]
     Active Substance: INFLIXIMAB
     Dosage: 400 MG/BODY/DAY
     Route: 042
     Dates: start: 20180717
  10. TAKEPRON [Concomitant]
     Active Substance: LANSOPRAZOLE
     Indication: GASTRITIS PROPHYLAXIS
     Dosage: 15 MG/DAY  (SINCE MORE THAN 3 MONTHS BEFORE THE INITIATION OF INFLIXIMAB BS)
  11. VALTREX [Concomitant]
     Active Substance: VALACYCLOVIR HYDROCHLORIDE
     Indication: PROPHYLAXIS
     Dosage: 500 MG, QD
     Dates: start: 20180911
  12. RHEUMATREX [Concomitant]
     Active Substance: METHOTREXATE SODIUM
     Indication: RHEUMATOID ARTHRITIS
     Dosage: 12 MG/WEEK
  13. EDIROL [Concomitant]
     Active Substance: ELDECALCITOL
     Indication: OSTEOPOROSIS
     Dosage: 0.75 UG/DAY (SINCE MORE THAN 3 MONTHS BEFORE THE INITIATION OF INFLIXIMAB BS)
  14. INFLIXIMAB BS FOR I.V. INFUSION100 MG [NK] [Suspect]
     Active Substance: INFLIXIMAB
     Dosage: 400 MG/BODY/DAY
     Route: 042
     Dates: start: 20180508, end: 20180508
  15. MAGNESIUM OXIDE. [Concomitant]
     Active Substance: MAGNESIUM OXIDE
     Indication: CONSTIPATION PROPHYLAXIS
     Dosage: 2 G/DAY (SINCE MORE THAN 3 MONTHS BEFORE THE INITIATION OF INFLIXIMAB BS)
  16. INFLIXIMAB BS FOR I.V. INFUSION100 MG [NK] [Suspect]
     Active Substance: INFLIXIMAB
     Dosage: 400 MG/BODY/DAY
     Route: 042
     Dates: start: 20180911, end: 20180911
  17. INFLIXIMAB BS FOR I.V. INFUSION100 MG [NK] [Suspect]
     Active Substance: INFLIXIMAB
     Dosage: 400 MG/BODY/DAY
     Route: 042
     Dates: start: 20181106, end: 20181106
  18. LOXONIN [Concomitant]
     Active Substance: LOXOPROFEN SODIUM
     Indication: RHEUMATOID ARTHRITIS
     Dosage: 120 MG/DAY (SINCE MORE THAN 3 MONTHS BEFORE THE INITIATION OF INFLIXIMAB BS)
  19. FERROMIA [Concomitant]
     Active Substance: SODIUM FERROUS CITRATE
     Indication: ANAEMIA
     Dosage: 50 MG/DAY
     Dates: start: 20180116
  20. PREDNISOLONE. [Concomitant]
     Active Substance: PREDNISOLONE
     Dosage: 0.5 MG/DAY
     Dates: start: 20180718, end: 20181106

REACTIONS (4)
  - Histiocytic necrotising lymphadenitis [Recovered/Resolved]
  - Herpes zoster [Recovered/Resolved]
  - Inappropriate schedule of product administration [Unknown]
  - Herpes zoster [Recovered/Resolved]

NARRATIVE: CASE EVENT DATE: 20171219
